FAERS Safety Report 24073132 (Version 1)
Quarter: 2024Q3

REPORT INFORMATION
  Report Type: Spontaneous
  Country: GB (occurrence: GB)
  Receive Date: 20240710
  Receipt Date: 20240710
  Transmission Date: 20241016
  Serious: Yes (Other)
  Sender: MYLAN
  Company Number: GB-MHRA-WEBRADR-202406252245272640-TJYLR

PATIENT
  Age: 44 Year
  Sex: Male
  Weight: 108 kg

DRUGS (1)
  1. AMLODIPINE [Suspect]
     Active Substance: AMLODIPINE BESYLATE
     Indication: Hypertension
     Dosage: 1 MILLIGRAM
     Route: 048
     Dates: start: 20230228

REACTIONS (1)
  - Capillariasis [Not Recovered/Not Resolved]

NARRATIVE: CASE EVENT DATE: 20230601
